FAERS Safety Report 15945614 (Version 1)
Quarter: 2019Q1

REPORT INFORMATION
  Report Type: Spontaneous
  Country: FI (occurrence: FI)
  Receive Date: 20190211
  Receipt Date: 20190211
  Transmission Date: 20190417
  Serious: Yes (Hospitalization)
  Sender: FDA-Public Use
  Company Number: FI-ACCORD-105892

PATIENT
  Age: 58 Year
  Sex: Male

DRUGS (15)
  1. PARA-TABS [Concomitant]
     Active Substance: ACETAMINOPHEN
     Dosage: ,,AS NECESSARY
     Route: 048
  2. OXYCONTIN [Concomitant]
     Active Substance: OXYCODONE HYDROCHLORIDE
     Dosage: 20,MG,DAILY
     Route: 048
  3. OXYNORM [Concomitant]
     Active Substance: OXYCODONE HYDROCHLORIDE
     Dosage: ,,AS NECESSARY
     Route: 048
  4. KALCIPOS-D [Concomitant]
     Active Substance: CALCIUM CARBONATE\CHOLECALCIFEROL
     Dosage: 2,DF,DAILY
     Route: 048
  5. DOCETAXEL ACCORD [Suspect]
     Active Substance: DOCETAXEL
     Indication: PROSTATE CANCER
     Dosage: 160,MG,X1
     Route: 042
     Dates: start: 20180524, end: 20180524
  6. GRANISETRON [Concomitant]
     Active Substance: GRANISETRON
     Dosage: ,,AS NECESSARY
     Route: 048
  7. DEXAMETASON [Concomitant]
     Active Substance: DEXAMETHASONE
     Route: 048
  8. CALCICHEW D3 [Concomitant]
     Active Substance: CALCIUM\CHOLECALCIFEROL
     Dosage: 2,DF,DAILY
     Route: 048
  9. PREDNISOLONE. [Concomitant]
     Active Substance: PREDNISOLONE
     Dosage: 10,MG,DAILY
     Route: 048
  10. PRIMPERAN [Concomitant]
     Active Substance: METOCLOPRAMIDE HYDROCHLORIDE
     Dosage: ,,AS NECESSARY
     Route: 048
  11. SYMBICORT [Concomitant]
     Active Substance: BUDESONIDE\FORMOTEROL FUMARATE DIHYDRATE
     Dosage: ,,AS NECESSARY
     Route: 055
  12. SOMAC [Concomitant]
     Active Substance: PANTOPRAZOLE SODIUM
     Dosage: ,,AS NECESSARY
     Route: 048
  13. FRAGMIN [Concomitant]
     Active Substance: DALTEPARIN SODIUM
  14. IMOVANE [Concomitant]
     Active Substance: ZOPICLONE
     Dosage: ,,AS NECESSARY
     Route: 048
  15. ENANTON [Concomitant]
     Active Substance: LEUPROLIDE ACETATE
     Dosage: 60,MG,YEARLY

REACTIONS (2)
  - Back pain [Recovered/Resolved]
  - Muscle spasms [Recovered/Resolved]

NARRATIVE: CASE EVENT DATE: 20180524
